FAERS Safety Report 11418134 (Version 1)
Quarter: 2015Q3

REPORT INFORMATION
  Report Type: Spontaneous
  Country: BR (occurrence: BR)
  Receive Date: 20150825
  Receipt Date: 20150825
  Transmission Date: 20151125
  Serious: Yes (Other)
  Sender: FDA-Public Use
  Company Number: BR-BRISTOL-MYERS SQUIBB COMPANY-BMS-2015-051673

PATIENT
  Sex: Male
  Weight: 87 kg

DRUGS (2)
  1. ELIQUIS [Suspect]
     Active Substance: APIXABAN
     Indication: CEREBROVASCULAR ACCIDENT PROPHYLAXIS
     Dosage: 5 MG, UNK
     Route: 048
  2. LEXOPAM [Concomitant]
     Indication: SOMNOLENCE
     Dosage: 3 MG, UNK
     Route: 065

REACTIONS (4)
  - Dyspepsia [Unknown]
  - Tooth infection [Unknown]
  - Cardiac pacemaker insertion [Unknown]
  - Cardiac ablation [Unknown]
